FAERS Safety Report 15338769 (Version 7)
Quarter: 2019Q1

REPORT INFORMATION
  Report Type: Spontaneous
  Country: US (occurrence: US)
  Receive Date: 20180831
  Receipt Date: 20190129
  Transmission Date: 20190417
  Serious: Yes (Other)
  Sender: FDA-Public Use
  Company Number: US-PFIZER INC-2018351348

PATIENT
  Age: 70 Year
  Sex: Female
  Weight: 80 kg

DRUGS (2)
  1. LETROZOLE. [Suspect]
     Active Substance: LETROZOLE
     Dosage: UNK
  2. IBRANCE [Suspect]
     Active Substance: PALBOCICLIB
     Indication: BREAST CANCER METASTATIC
     Dosage: 125 MG, CYCLIC (DAYS1-21 EVERY 28 DAYS)
     Route: 048
     Dates: start: 20180807, end: 201901

REACTIONS (41)
  - Fatigue [Unknown]
  - White blood cell count decreased [Not Recovered/Not Resolved]
  - Tumour marker increased [Unknown]
  - Productive cough [Unknown]
  - Epistaxis [Unknown]
  - Mucous membrane disorder [Unknown]
  - Platelet count decreased [Unknown]
  - Parosmia [Unknown]
  - Nasal discomfort [Unknown]
  - Alopecia [Unknown]
  - Pulmonary oedema [Unknown]
  - Myalgia [Unknown]
  - Vision blurred [Not Recovered/Not Resolved]
  - Full blood count decreased [Unknown]
  - Dyspnoea exertional [Unknown]
  - Headache [Unknown]
  - Cough [Unknown]
  - Regurgitation [Unknown]
  - Red blood cell count decreased [Not Recovered/Not Resolved]
  - Stomatitis [Unknown]
  - Madarosis [Unknown]
  - Oropharyngeal spasm [Unknown]
  - Dysphagia [Unknown]
  - Nausea [Unknown]
  - Contusion [Unknown]
  - Ear pain [Unknown]
  - Dry mouth [Unknown]
  - Dysgeusia [Unknown]
  - Neoplasm progression [Unknown]
  - Pleural effusion [Unknown]
  - Pruritus [Unknown]
  - Gait disturbance [Unknown]
  - Dry skin [Unknown]
  - Abdominal pain upper [Unknown]
  - Hyperaesthesia [Unknown]
  - Back pain [Unknown]
  - Haemoptysis [Unknown]
  - Pulmonary fibrosis [Unknown]
  - Musculoskeletal chest pain [Unknown]
  - Arthralgia [Unknown]
  - Dizziness [Not Recovered/Not Resolved]

NARRATIVE: CASE EVENT DATE: 2018
